FAERS Safety Report 24860129 (Version 1)
Quarter: 2025Q1

REPORT INFORMATION
  Report Type: Spontaneous
  Country: CN (occurrence: CN)
  Receive Date: 20250120
  Receipt Date: 20250120
  Transmission Date: 20250408
  Serious: Yes (Hospitalization)
  Sender: PFIZER
  Company Number: CN-PFIZER INC-PV202500005939

PATIENT
  Age: 8 Year
  Sex: Male
  Weight: 23.7 kg

DRUGS (3)
  1. CYTARABINE [Suspect]
     Active Substance: CYTARABINE
     Indication: Acute myeloid leukaemia
     Dosage: 0.03 G, 1X/DAY D1-5
     Route: 037
     Dates: start: 20241220, end: 20241224
  2. ETOPOSIDE [Suspect]
     Active Substance: ETOPOSIDE
     Indication: Acute myeloid leukaemia
     Dosage: 0.1 G, 1X/DAY D4-5
     Route: 041
     Dates: start: 20241223, end: 20241225
  3. METHOTREXATE [Suspect]
     Active Substance: METHOTREXATE
     Indication: Acute myeloid leukaemia
     Dosage: 12 MG, 1X/DAY D1-3
     Route: 037
     Dates: start: 20241220, end: 20241222

REACTIONS (1)
  - Drug-induced liver injury [Recovering/Resolving]

NARRATIVE: CASE EVENT DATE: 20241225
